FAERS Safety Report 25257028 (Version 1)
Quarter: 2025Q2

REPORT INFORMATION
  Report Type: Report from Study
  Country: CA (occurrence: CA)
  Receive Date: 20250430
  Receipt Date: 20250430
  Transmission Date: 20250716
  Serious: Yes (Other)
  Sender: TAKEDA
  Company Number: CA-TAKEDA-2019TUS074373

PATIENT
  Age: 63 Year
  Sex: Male

DRUGS (12)
  1. VEDOLIZUMAB [Suspect]
     Active Substance: VEDOLIZUMAB
     Indication: Crohn^s disease
  2. VEDOLIZUMAB [Suspect]
     Active Substance: VEDOLIZUMAB
     Dosage: 300 MILLIGRAM, Q4WEEKS
     Dates: start: 20200124
  3. VEDOLIZUMAB [Suspect]
     Active Substance: VEDOLIZUMAB
     Dosage: 300 MILLIGRAM, Q4WEEKS
  4. VEDOLIZUMAB [Suspect]
     Active Substance: VEDOLIZUMAB
     Dosage: 300 MILLIGRAM, Q4WEEKS
  5. AMINOSALICYLIC ACID [Concomitant]
     Active Substance: AMINOSALICYLIC ACID
     Indication: Crohn^s disease
     Dosage: UNK UNK, TID
  6. PREDNISONE [Concomitant]
     Active Substance: PREDNISONE
  7. HYDROCHLOROTHIAZIDE [Concomitant]
     Active Substance: HYDROCHLOROTHIAZIDE
     Dosage: 50 MILLIGRAM, QD
  8. METFORMIN [Concomitant]
     Active Substance: METFORMIN HYDROCHLORIDE
     Indication: Diabetes mellitus
     Dosage: 500 MILLIGRAM, TID
  9. JARDIANCE [Concomitant]
     Active Substance: EMPAGLIFLOZIN
     Indication: Diabetes mellitus
     Dosage: 25 MILLIGRAM, QD
  10. RAMIPRIL [Concomitant]
     Active Substance: RAMIPRIL
     Indication: Blood pressure abnormal
     Dosage: 2.5 MILLIGRAM, TID
  11. ROSUVASTATIN [Concomitant]
     Active Substance: ROSUVASTATIN
     Dosage: 5 MILLIGRAM, QD
  12. B12 [Concomitant]
     Dosage: 1200 MILLIGRAM, QD

REACTIONS (16)
  - Crohn^s disease [Unknown]
  - Diverticulum intestinal [Unknown]
  - Poor quality sleep [Not Recovered/Not Resolved]
  - Diarrhoea [Not Recovered/Not Resolved]
  - Off label use [Unknown]
  - Faeces soft [Unknown]
  - Gastrooesophageal reflux disease [Unknown]
  - Duodenitis [Unknown]
  - Gastric mucosa erythema [Unknown]
  - Anorectal polyp [Unknown]
  - Gastrointestinal angiodysplasia [Unknown]
  - Gastrointestinal scarring [Unknown]
  - Malaise [Unknown]
  - Abdominal pain [Unknown]
  - Haemorrhoids [Unknown]
  - Arthralgia [Unknown]

NARRATIVE: CASE EVENT DATE: 20200124
